FAERS Safety Report 9758466 (Version 1)
Quarter: 2013Q4

REPORT INFORMATION
  Report Type: Spontaneous
  Country: US (occurrence: None)
  Receive Date: 20131216
  Receipt Date: 20131216
  Transmission Date: 20140711
  Serious: Yes (Death)
  Sender: FDA-Public Use
  Company Number: CABO-13002503

PATIENT
  Age: 60 Year
  Sex: Female
  Weight: 61 kg

DRUGS (1)
  1. COMETRIQ [Suspect]
     Indication: MALIGNANT MELANOMA
     Dosage: 140 MG, QD, ORAL?100 MG, QD, ORAL

REACTIONS (12)
  - Malignant neoplasm progression [None]
  - Urinary tract infection [None]
  - General physical health deterioration [None]
  - Skin fissures [None]
  - Erythema [None]
  - Dyspepsia [None]
  - Dysphonia [None]
  - Oropharyngeal pain [None]
  - Asthenia [None]
  - Balance disorder [None]
  - Pain in extremity [None]
  - Haemorrhoids [None]
